FAERS Safety Report 7911777-2 (Version None)
Quarter: 2011Q4

REPORT INFORMATION
  Report Type: 
  Country: None (occurrence: None)
  Receive Date: 20111114
  Receipt Date: 20111114
  Transmission Date: 20120403
  Serious: No
  Sender: FDA-Public Use
  Company Number: None

PATIENT
  Age: 52 Year
  Sex: Male
  Weight: 93.893 kg

DRUGS (2)
  1. CLARITHROMYCIN [Suspect]
     Indication: NASAL OPERATION
     Dosage: 1 TABS
     Route: 048
     Dates: start: 20111101, end: 20111101
  2. CLARITHROMYCIN [Suspect]
     Indication: POSTOPERATIVE CARE
     Dosage: 1 TABS
     Route: 048
     Dates: start: 20111101, end: 20111101

REACTIONS (7)
  - HEADACHE [None]
  - SWELLING FACE [None]
  - PHARYNGEAL OEDEMA [None]
  - RASH [None]
  - PYREXIA [None]
  - NAUSEA [None]
  - DYSPNOEA [None]
